FAERS Safety Report 20832579 (Version 3)
Quarter: 2022Q4

REPORT INFORMATION
  Report Type: Report from Study
  Country: US (occurrence: US)
  Receive Date: 20220516
  Receipt Date: 20221212
  Transmission Date: 20230113
  Serious: Yes (Hospitalization, Other)
  Sender: FDA-Public Use
  Company Number: US-TAKEDA-US201845269

PATIENT
  Age: 67 Year
  Sex: Female
  Weight: 58 kg

DRUGS (15)
  1. TEDUGLUTIDE [Suspect]
     Active Substance: TEDUGLUTIDE
     Indication: Short-bowel syndrome
     Dosage: 2.91 MILLIGRAM, QD
     Route: 042
     Dates: start: 20180216, end: 20190110
  2. TEDUGLUTIDE [Suspect]
     Active Substance: TEDUGLUTIDE
     Indication: Short-bowel syndrome
     Dosage: 2.91 MILLIGRAM, QD
     Route: 042
     Dates: start: 20180216, end: 20190110
  3. TEDUGLUTIDE [Suspect]
     Active Substance: TEDUGLUTIDE
     Indication: Short-bowel syndrome
     Dosage: 2.91 MILLIGRAM, QD
     Route: 042
     Dates: start: 20180216, end: 20190110
  4. TEDUGLUTIDE [Suspect]
     Active Substance: TEDUGLUTIDE
     Indication: Short-bowel syndrome
     Dosage: 2.91 MILLIGRAM, QD
     Route: 042
     Dates: start: 20180216, end: 20190110
  5. SODIUM CHLORIDE [Concomitant]
     Active Substance: SODIUM CHLORIDE
     Indication: Short-bowel syndrome
     Dosage: UNK
     Route: 065
  6. PANTOPRAZOLE [Concomitant]
     Active Substance: PANTOPRAZOLE
     Indication: Gastrooesophageal reflux disease
     Dosage: UNK
     Route: 065
  7. CEFTRIAXONE [Concomitant]
     Active Substance: CEFTRIAXONE
     Indication: Vascular device infection
     Dosage: UNK
     Route: 042
  8. EUCERIN UREA [Concomitant]
     Indication: Dermatitis contact
     Dosage: UNK
     Route: 062
     Dates: start: 20190715, end: 20190715
  9. BENADRYL [Concomitant]
     Active Substance: DIPHENHYDRAMINE HYDROCHLORIDE
     Indication: Dermatitis contact
     Dosage: 25 MILLIGRAM
     Route: 048
     Dates: start: 20190715, end: 20190715
  10. OXYCODONE [Concomitant]
     Active Substance: OXYCODONE
     Indication: Abdominal pain
     Dosage: 5 MILLIGRAM
     Route: 048
     Dates: start: 20190712, end: 20190718
  11. PIPERACILLIN AND TAZOBACTAM [Concomitant]
     Active Substance: PIPERACILLIN SODIUM\TAZOBACTAM SODIUM
     Indication: Prophylaxis
     Dosage: 4.5 GRAM, TID
     Route: 042
     Dates: start: 20190711, end: 20190714
  12. OCTREOTIDE [Concomitant]
     Active Substance: OCTREOTIDE
     Indication: Diarrhoea
     Dosage: 50 MICROGRAM, TID
     Route: 058
     Dates: start: 20220601
  13. VITAMIN D2 [Concomitant]
     Active Substance: ERGOCALCIFEROL
     Indication: Vitamin D deficiency
     Dosage: 1.25 MILLIGRAM, 1/WEEK
     Route: 048
     Dates: start: 20210610
  14. NICODERM CQ [Concomitant]
     Active Substance: NICOTINE
     Indication: Tobacco abuse
     Dosage: 7 MILLIGRAM, QD
     Route: 062
     Dates: start: 20211026, end: 20211111
  15. NICOTINE [Concomitant]
     Active Substance: NICOTINE
     Indication: Tobacco abuse
     Dosage: 4 MILLIGRAM
     Route: 048
     Dates: start: 20200714

REACTIONS (5)
  - Vascular device infection [Recovered/Resolved]
  - Vascular access complication [Recovered/Resolved]
  - Pyrexia [Recovered/Resolved]
  - Hypomagnesaemia [Recovered/Resolved]
  - Hyponatraemia [Recovered/Resolved]

NARRATIVE: CASE EVENT DATE: 20180308
